FAERS Safety Report 25670402 (Version 2)
Quarter: 2025Q3

REPORT INFORMATION
  Report Type: Spontaneous
  Country: JP (occurrence: JP)
  Receive Date: 20250812
  Receipt Date: 20250903
  Transmission Date: 20251020
  Serious: Yes (Other)
  Sender: PFIZER
  Company Number: JP-PFIZER INC-202500159582

PATIENT
  Age: 89 Year
  Sex: Female
  Weight: 34.5 kg

DRUGS (34)
  1. PAXLOVID [Suspect]
     Active Substance: NIRMATRELVIR\RITONAVIR
     Indication: COVID-19 treatment
     Dosage: UNK UNK, 2X/DAY
     Route: 048
     Dates: start: 20250805, end: 20250807
  2. PAXLOVID [Suspect]
     Active Substance: NIRMATRELVIR\RITONAVIR
     Route: 048
     Dates: start: 20250809, end: 20250809
  3. METHYLCOBALAMIN [Concomitant]
     Active Substance: METHYLCOBALAMIN
     Dosage: 500 UG, 2X/DAY,  AFTER BREAKFAST AND DINNER
     Route: 048
     Dates: end: 20250806
  4. METHYLCOBALAMIN [Concomitant]
     Active Substance: METHYLCOBALAMIN
     Dosage: 500 UG, 1X/DAY,  AFTER BREAKFAST
     Route: 048
     Dates: start: 20250807, end: 20250807
  5. METHYLCOBALAMIN [Concomitant]
     Active Substance: METHYLCOBALAMIN
     Dosage: 500 UG, 1X/DAY,  AFTER DINNER
     Route: 048
     Dates: start: 20250809, end: 20250809
  6. METHYLCOBALAMIN [Concomitant]
     Active Substance: METHYLCOBALAMIN
     Dosage: 500 UG, 1X/DAY,  AFTER DINNER
     Route: 048
     Dates: start: 20250818, end: 20250818
  7. METHYLCOBALAMIN [Concomitant]
     Active Substance: METHYLCOBALAMIN
     Dosage: 500 UG, 2X/DAY,  AFTER BREAKFAST AND DINNER
     Route: 048
     Dates: start: 20250819
  8. MAGNESIUM OXIDE [Concomitant]
     Active Substance: MAGNESIUM OXIDE
     Dosage: 500 MG, 2X/DAY, AFTER BREAKFAST AND DINNER
     Route: 048
     Dates: end: 20250806
  9. MAGNESIUM OXIDE [Concomitant]
     Active Substance: MAGNESIUM OXIDE
     Dosage: 500 MG, 1X/DAY, AFTER BREAKFAST
     Route: 048
     Dates: start: 20250807, end: 20250807
  10. MAGNESIUM OXIDE [Concomitant]
     Active Substance: MAGNESIUM OXIDE
     Dosage: 500 MG, 1X/DAY, AFTER DINNER
     Route: 048
     Dates: start: 20250809, end: 20250809
  11. ADETPHOS KOWA [Concomitant]
     Dosage: 1 G, 3X/DAY, AFTER BREAKFAST, LUNCH, AND DINNER
     Route: 048
     Dates: end: 20250806
  12. ADETPHOS KOWA [Concomitant]
     Dosage: 1 G, 2X/DAY, AFTER BREAKFAST AND LUNCH
     Route: 048
     Dates: start: 20250807, end: 20250807
  13. ADETPHOS KOWA [Concomitant]
     Dosage: 1 G, 1X/DAY, AFTER DINNER
     Route: 048
     Dates: start: 20250809, end: 20250809
  14. DIPHENIDOL HYDROCHLORIDE [Concomitant]
     Active Substance: DIPHENIDOL HYDROCHLORIDE
     Dosage: 25 MG, 3X/DAY, AFTER BREAKFAST, LUNCH, AND DINNER
     Route: 048
     Dates: end: 20250806
  15. DIPHENIDOL HYDROCHLORIDE [Concomitant]
     Active Substance: DIPHENIDOL HYDROCHLORIDE
     Dosage: 25 MG, 2X/DAY, AFTER BREAKFAST AND LUNCH
     Route: 048
     Dates: start: 20250807, end: 20250807
  16. DIPHENIDOL HYDROCHLORIDE [Concomitant]
     Active Substance: DIPHENIDOL HYDROCHLORIDE
     Dosage: 25 MG, 1X/DAY, AFTER DINNER
     Route: 048
     Dates: start: 20250809, end: 20250809
  17. DIPHENIDOL HYDROCHLORIDE [Concomitant]
     Active Substance: DIPHENIDOL HYDROCHLORIDE
     Dosage: 25 MG, 1X/DAY, AFTER DINNER
     Route: 048
     Dates: start: 20250818, end: 20250818
  18. DIPHENIDOL HYDROCHLORIDE [Concomitant]
     Active Substance: DIPHENIDOL HYDROCHLORIDE
     Dosage: 25 MG, 3X/DAY, AFTER BREAKFAST, LUNCH, AND DINNER
     Route: 048
     Dates: start: 20250819
  19. MOSAPRIDE CITRATE [Concomitant]
     Active Substance: MOSAPRIDE CITRATE
     Dosage: 5 MG, 3X/DAY, AFTER BREAKFAST, LUNCH, AND DINNER
     Route: 048
     Dates: end: 20250806
  20. MOSAPRIDE CITRATE [Concomitant]
     Active Substance: MOSAPRIDE CITRATE
     Dosage: 5 MG, 2X/DAY, AFTER BREAKFAST AND LUNCH
     Route: 048
     Dates: start: 20250807, end: 20250807
  21. MOSAPRIDE CITRATE [Concomitant]
     Active Substance: MOSAPRIDE CITRATE
     Dosage: 5 MG, 1X/DAY, AFTER DINNER
     Route: 048
     Dates: start: 20250809, end: 20250809
  22. BIO-THREE [Concomitant]
     Active Substance: HERBALS
     Dosage: 1 TABLET, 3X/DAY, AFTER BREAKFAST, LUNCH, AND DINNER
     Route: 048
     Dates: end: 20250806
  23. BIO-THREE [Concomitant]
     Active Substance: HERBALS
     Dosage: 1 TABLET, 2X/DAY, AFTER BREAKFAST AND LUNCH
     Route: 048
     Dates: start: 20250807, end: 20250807
  24. BIO-THREE [Concomitant]
     Active Substance: HERBALS
     Dosage: 1 TABLET, 1X/DAY, AFTER DINNER
     Route: 048
     Dates: start: 20250809, end: 20250809
  25. BIO-THREE [Concomitant]
     Active Substance: HERBALS
     Dosage: 1 TABLET, 2X/DAY, AFTER LUNCH AND DINNER
     Route: 048
     Dates: start: 20250815, end: 20250815
  26. BIO-THREE [Concomitant]
     Active Substance: HERBALS
     Dosage: 1 TABLET, 3X/DAY, AFTER BREAKFAST, LUNCH, AND DINNER
     Route: 048
     Dates: start: 20250816
  27. ESOMEPRAZOLE [Concomitant]
     Active Substance: ESOMEPRAZOLE
     Dosage: 10 MG, 1X/DAY,AFTER DINNER
     Route: 048
     Dates: end: 20250806
  28. ESOMEPRAZOLE [Concomitant]
     Active Substance: ESOMEPRAZOLE
     Dosage: 10 MG, 1X/DAY,AFTER DINNER
     Route: 048
     Dates: start: 20250809, end: 20250809
  29. ELDECALCITOL [Concomitant]
     Active Substance: ELDECALCITOL
     Dosage: 0.75 UG, 1X/DAY, AFTER BREAKFAST
     Route: 048
     Dates: end: 20250807
  30. ELDECALCITOL [Concomitant]
     Active Substance: ELDECALCITOL
     Dosage: 0.75 UG, 1X/DAY, AFTER BREAKFAST
     Route: 048
     Dates: start: 20250819
  31. LINZESS [Concomitant]
     Active Substance: LINACLOTIDE
     Dosage: 0.5 MG, 1X/DAY, BEFORE BREAKFAST
     Route: 048
     Dates: end: 20250807
  32. LINZESS [Concomitant]
     Active Substance: LINACLOTIDE
     Dosage: 0.5 MG, 1X/DAY, BEFORE BREAKFAST
     Route: 048
     Dates: start: 20250819
  33. ETHYL LOFLAZEPATE [Concomitant]
     Active Substance: ETHYL LOFLAZEPATE
     Dosage: 1 MG, 1X/DAY, BEFORE BEDTIME
     Route: 048
     Dates: start: 20250802, end: 20250806
  34. ETHYL LOFLAZEPATE [Concomitant]
     Active Substance: ETHYL LOFLAZEPATE
     Dosage: 1 MG, 1X/DAY, BEFORE BEDTIME
     Route: 048
     Dates: start: 20250818

REACTIONS (7)
  - Renal impairment [Unknown]
  - Intestinal obstruction [Recovering/Resolving]
  - Ileus paralytic [Recovering/Resolving]
  - Enterocolitis [Recovering/Resolving]
  - Nausea [Recovered/Resolved]
  - Vomiting [Recovering/Resolving]
  - Dehydration [Recovering/Resolving]

NARRATIVE: CASE EVENT DATE: 20250807
